FAERS Safety Report 5977632-2 (Version None)
Quarter: 2008Q4

REPORT INFORMATION
  Report Type: 
  Country: None (occurrence: None)
  Receive Date: 20081203
  Receipt Date: 20081126
  Transmission Date: 20090506
  Serious: Yes (Disabling)
  Sender: FDA-Public Use
  Company Number: US-MERCK-0811USA04248

PATIENT
  Age: 52 Year

DRUGS (1)
  1. FOSAMAX [Suspect]
     Route: 065
     Dates: start: 20010401, end: 20050101

REACTIONS (2)
  - JAW DISORDER [None]
  - OSTEONECROSIS [None]
